FAERS Safety Report 12634820 (Version 1)
Quarter: 2016Q3

REPORT INFORMATION
  Report Type: Spontaneous
  Country: US (occurrence: None)
  Receive Date: 20160808
  Receipt Date: 20160808
  Transmission Date: 20161109
  Serious: Yes (Other)
  Sender: FDA-Public Use
  Company Number: None

PATIENT
  Age: 61 Year
  Sex: Female
  Weight: 72.58 kg

DRUGS (10)
  1. HYDROCHOLOQUINE [Concomitant]
  2. TRIAM/HCTZ [Concomitant]
  3. LIALDA [Concomitant]
     Active Substance: MESALAMINE
  4. LEVOTHYROXIN [Concomitant]
     Active Substance: LEVOTHYROXINE
  5. CENTRUM SENIOR [Concomitant]
  6. ATENELOL [Concomitant]
     Active Substance: ATENOLOL
  7. LOVOZA [Concomitant]
  8. HUMIRA IBJECTIONS [Concomitant]
  9. ALLEGRA ALLERGY [Suspect]
     Active Substance: FEXOFENADINE HYDROCHLORIDE
     Indication: HYPERSENSITIVITY
     Dosage: ALLEGRA ALLERGY 180 MG?1 TABLET ONCE A DAY?TAKEN BY MOUTH
     Route: 048
     Dates: start: 20160710, end: 20160801
  10. PROTONIX [Concomitant]
     Active Substance: PANTOPRAZOLE SODIUM

REACTIONS (4)
  - Ocular hyperaemia [None]
  - Ocular discomfort [None]
  - Eye irritation [None]
  - Vision blurred [None]

NARRATIVE: CASE EVENT DATE: 20160722
